FAERS Safety Report 7169602-6 (Version None)
Quarter: 2010Q4

REPORT INFORMATION
  Report Type: 
  Country: None (occurrence: None)
  Receive Date: 20101217
  Receipt Date: 20101208
  Transmission Date: 20110411
  Serious: Yes (Hospitalization)
  Sender: FDA-Public Use
  Company Number: JP-JNJFOC-20101205299

PATIENT
  Age: 76 Year
  Sex: Male

DRUGS (5)
  1. CRAVIT [Suspect]
     Indication: INFECTION
     Route: 048
  2. CRAVIT [Suspect]
     Route: 048
  3. LOXONIN [Suspect]
     Indication: ANALGESIC THERAPY
     Dosage: AS-NEEDED BASIS
     Route: 048
  4. LOXONIN [Suspect]
     Indication: PYREXIA
     Dosage: AS-NEEDED BASIS
     Route: 048
  5. FLOMOX [Suspect]
     Indication: PRODUCT USED FOR UNKNOWN INDICATION
     Dosage: AS-NEEDED BASIS
     Route: 065

REACTIONS (2)
  - EOSINOPHILIA [None]
  - WHITE BLOOD CELL COUNT INCREASED [None]
